FAERS Safety Report 7967489-2 (Version None)
Quarter: 2011Q4

REPORT INFORMATION
  Report Type: 
  Country: None (occurrence: None)
  Receive Date: 20111209
  Receipt Date: 20101210
  Transmission Date: 20120403
  Serious: No
  Sender: FDA-Public Use
  Company Number: US-GLAXOSMITHKLINE-A0899306A

PATIENT
  Age: 62 Year
  Sex: Male

DRUGS (4)
  1. GINSENG [Concomitant]
  2. IBUPROFEN [Concomitant]
  3. ASPIRIN [Concomitant]
  4. AVANDAMET [Suspect]
     Indication: TYPE 2 DIABETES MELLITUS
     Dosage: 1TAB TWICE PER DAY
     Route: 048
     Dates: start: 20101101

REACTIONS (1)
  - BLOOD GLUCOSE INCREASED [None]
